FAERS Safety Report 16661431 (Version 25)
Quarter: 2021Q1

REPORT INFORMATION
  Report Type: Spontaneous
  Country: US (occurrence: US)
  Receive Date: 20190802
  Receipt Date: 20210310
  Transmission Date: 20210419
  Serious: Yes (Other)
  Sender: FDA-Public Use
  Company Number: US-PFIZER INC-2019314229

PATIENT
  Age: 67 Year
  Sex: Male

DRUGS (3)
  1. LYRICA [Suspect]
     Active Substance: PREGABALIN
     Indication: PROCEDURAL PAIN
     Dosage: 150 MG, 4X/DAY [QID (FOUR TIMES A DAY)]
     Route: 048
  2. LYRICA [Suspect]
     Active Substance: PREGABALIN
     Indication: FRACTURE PAIN
     Dosage: 150 MG, 2X/DAY
     Route: 048
  3. LYRICA [Suspect]
     Active Substance: PREGABALIN
     Indication: INTERVERTEBRAL DISC PROTRUSION
     Dosage: 75 MG, UNK

REACTIONS (7)
  - Drug ineffective [Unknown]
  - Diarrhoea [Unknown]
  - Intentional product misuse [Unknown]
  - Nausea [Unknown]
  - Drug dependence [Unknown]
  - Malaise [Unknown]
  - Intentional product use issue [Unknown]
